FAERS Safety Report 23426982 (Version 1)
Quarter: 2024Q1

REPORT INFORMATION
  Report Type: Report from Study
  Country: US (occurrence: None)
  Receive Date: 20240122
  Receipt Date: 20240122
  Transmission Date: 20240409
  Serious: Yes (Hospitalization)
  Sender: FDA-Public Use
  Company Number: 2024A010502

PATIENT
  Age: 49 Year
  Sex: Female
  Weight: 59.4 kg

DRUGS (16)
  1. TEZSPIRE [Suspect]
     Active Substance: TEZEPELUMAB-EKKO
     Indication: Asthma
     Route: 058
  2. TEZSPIRE [Suspect]
     Active Substance: TEZEPELUMAB-EKKO
     Indication: Asthma
     Route: 058
  3. SYMBICORT [Suspect]
     Active Substance: BUDESONIDE\FORMOTEROL FUMARATE DIHYDRATE
     Dosage: 80-4.5, 2 PUFFS,UNKNOWN UNKNOWN
     Route: 055
  4. NEXIUM [Suspect]
     Active Substance: ESOMEPRAZOLE MAGNESIUM
     Route: 048
  5. OMEPRAZOLE [Suspect]
     Active Substance: OMEPRAZOLE
     Route: 048
  6. TEZSPIRE [Concomitant]
     Active Substance: TEZEPELUMAB-EKKO
     Route: 058
  7. ALBUTEROL SULFATE [Concomitant]
     Active Substance: ALBUTEROL SULFATE
     Dosage: 1-4 PUFF EVERY 4-6 HOURS
  8. AZELASTINE [Concomitant]
     Active Substance: AZELASTINE\AZELASTINE HYDROCHLORIDE
     Dosage: 1 TO 2 SPRAY(S) IN BOTH NOSTRILS TWICE A DAY
  9. DUPIXENT [Concomitant]
     Active Substance: DUPILUMAB
     Dosage: INJECT 300MG SUBCUTANEOUSLY OVEIY 2 WEEKS
     Route: 058
  10. FLONASE [Concomitant]
     Active Substance: FLUTICASONE PROPIONATE
     Dosage: USE 2 #PRAYS IN EACH NOSTRIL ONCE A DAY
  11. MONTELUKAST [Concomitant]
     Active Substance: MONTELUKAST SODIUM
     Route: 048
  12. SINGULAIR [Concomitant]
     Active Substance: MONTELUKAST SODIUM
     Dosage: 1 TABLET(S) AT NIGHT
     Route: 048
  13. SPIRIVA RESPIMAT [Concomitant]
     Active Substance: TIOTROPIUM BROMIDE
     Dosage: LNHALS 2 PUFFS ONCE A DAY
     Route: 055
  14. SYMBICORT [Concomitant]
     Active Substance: BUDESONIDE\FORMOTEROL FUMARATE DIHYDRATE
     Dosage: AO-4.5 MCG INHALER, INHALE 2 PUFFS TWICE A DAY
     Route: 055
  15. TRELEGY ELLIPTA [Concomitant]
     Active Substance: FLUTICASONE FUROATE\UMECLIDINIUM BROMIDE\VILANTEROL TRIFENATATE
     Dosage: 1 PUFF FAILY, RINSE MOUTH AFTER EACH USE
  16. XOPENEX HFA [Concomitant]
     Active Substance: LEVALBUTEROL TARTRATE

REACTIONS (17)
  - Lacrimation increased [Unknown]
  - Eye pruritus [Unknown]
  - Facial discomfort [Unknown]
  - Nasal congestion [Unknown]
  - Rhinorrhoea [Unknown]
  - Epistaxis [Unknown]
  - Upper-airway cough syndrome [Unknown]
  - Sneezing [Unknown]
  - Oropharyngeal pain [Unknown]
  - Dysphonia [Unknown]
  - Chest discomfort [Unknown]
  - Productive cough [Unknown]
  - Dyspnoea [Unknown]
  - Dyspepsia [Unknown]
  - Ear pruritus [Unknown]
  - Wheezing [Unknown]
  - Inappropriate schedule of product administration [Unknown]
